FAERS Safety Report 4840275-8 (Version None)
Quarter: 2005Q4

REPORT INFORMATION
  Report Type: 
  Country: None (occurrence: None)
  Receive Date: 20051125
  Receipt Date: 20051117
  Transmission Date: 20060501
  Serious: Yes (Life-Threatening)
  Sender: FDA-Public Use
  Company Number: SU-2005-004270

PATIENT
  Age: 61 Year
  Sex: Male
  Weight: 82.1011 kg

DRUGS (12)
  1. BENICAR [Suspect]
     Dosage: MG QD PO
     Route: 048
     Dates: start: 20050111
  2. BLINDED THERAPY (TORCETRAPIB/ATORVASTATIN) [Concomitant]
  3. METFORMIN [Concomitant]
  4. LISINOPRIL W/ HYDROCHLOROTHIAZIDE [Concomitant]
  5. MULTI-VITAMINS [Concomitant]
  6. IBUPROFEN [Concomitant]
  7. ASPIRIN [Concomitant]
  8. FISH OIL [Concomitant]
  9. ASCORBIC ACID [Concomitant]
  10. HYDROCODONE [Concomitant]
  11. CINNAMON [Concomitant]
  12. PENICILLIN [Concomitant]

REACTIONS (14)
  - ALCOHOLISM [None]
  - BACK PAIN [None]
  - BLOOD BICARBONATE DECREASED [None]
  - BLOOD CREATININE INCREASED [None]
  - BLOOD POTASSIUM INCREASED [None]
  - BLOOD UREA INCREASED [None]
  - DEHYDRATION [None]
  - DRUG ABUSER [None]
  - HAEMATOCHEZIA [None]
  - MALAISE [None]
  - PAIN [None]
  - RENAL FAILURE [None]
  - SCIATICA [None]
  - THINKING ABNORMAL [None]
